FAERS Safety Report 18954503 (Version 2)
Quarter: 2021Q1

REPORT INFORMATION
  Report Type: Report from Study
  Country: GB (occurrence: GB)
  Receive Date: 20210301
  Receipt Date: 20210307
  Transmission Date: 20210420
  Serious: Yes (Other)
  Sender: FDA-Public Use
  Company Number: GB-SAMSUNG BIOEPIS-SB-2020-25875

PATIENT
  Age: 24 Year
  Sex: Female

DRUGS (1)
  1. IMRALDI [Suspect]
     Active Substance: ADALIMUMAB
     Indication: CROHN^S DISEASE
     Route: 058
     Dates: start: 20200511

REACTIONS (7)
  - COVID-19 [Unknown]
  - Psychiatric symptom [Unknown]
  - Eczema [Unknown]
  - Skin infection [Unknown]
  - Headache [Unknown]
  - Fatigue [Unknown]
  - Poor quality sleep [Unknown]
